FAERS Safety Report 4807747-3 (Version None)
Quarter: 2005Q4

REPORT INFORMATION
  Report Type: 
  Country: None (occurrence: None)
  Receive Date: 20051019
  Receipt Date: 20050912
  Transmission Date: 20060501
  Serious: Yes (Hospitalization)
  Sender: FDA-Public Use
  Company Number: 2005RR-00801

PATIENT
  Age: 77 Year
  Sex: Male

DRUGS (9)
  1. ASPIRIN [Suspect]
     Dosage: 75 MG, QD, ORAL
     Route: 048
     Dates: start: 20010101, end: 20050815
  2. RANITIDINE [Concomitant]
  3. AMLODIPINE [Concomitant]
  4. BENDROFLUAZIDE TABLET [Concomitant]
  5. PERINDOPRIL [Concomitant]
  6. QUININE SULPHATE [Concomitant]
  7. LANSOPRAZOLE [Concomitant]
  8. GAVISCON [Concomitant]
  9. ZANTAC [Concomitant]

REACTIONS (1)
  - DUODENAL ULCER PERFORATION [None]
